FAERS Safety Report 5022002-7 (Version None)
Quarter: 2006Q2

REPORT INFORMATION
  Report Type: 
  Country: None (occurrence: None)
  Receive Date: 20060501
  Receipt Date: 20060113
  Transmission Date: 20061013
  Serious: Yes (Other)
  Sender: FDA-Public Use
  Company Number: 200610465US

PATIENT
  Age: 73 Year
  Sex: Male

DRUGS (2)
  1. KETEK [Suspect]
  2. AMBIEN [Concomitant]

REACTIONS (1)
  - DIPLOPIA [None]
